FAERS Safety Report 9370133 (Version 1)
Quarter: 2013Q2

REPORT INFORMATION
  Report Type: Spontaneous
  Country: US (occurrence: None)
  Receive Date: 20130621
  Receipt Date: 20130621
  Transmission Date: 20140414
  Serious: Yes (Hospitalization)
  Sender: FDA-Public Use
  Company Number: US-024843

PATIENT
  Age: 82 Year
  Sex: Male
  Weight: 58.2 kg

DRUGS (1)
  1. CHLORAMUCIL [Suspect]
     Indication: CHRONIC LYMPHOCYTIC LEUKAEMIA
     Route: 048
     Dates: start: 20111103, end: 20111107

REACTIONS (1)
  - Pneumonia [None]
